FAERS Safety Report 14681950 (Version 4)
Quarter: 2018Q2

REPORT INFORMATION
  Report Type: Spontaneous
  Country: US (occurrence: US)
  Receive Date: 20180326
  Receipt Date: 20180425
  Transmission Date: 20180711
  Serious: No
  Sender: FDA-Public Use
  Company Number: US-ACTELION-A-NJ2018-169681

PATIENT
  Age: 82 Year
  Sex: Female
  Weight: 55.78 kg

DRUGS (5)
  1. OPSUMIT [Suspect]
     Active Substance: MACITENTAN
     Indication: PULMONARY ARTERIAL HYPERTENSION
     Dosage: 10 MG, QD
     Route: 048
  2. AMLODIPINE [Concomitant]
     Active Substance: AMLODIPINE BESYLATE
  3. UPTRAVI [Suspect]
     Active Substance: SELEXIPAG
     Dosage: 200 MCG, BID
     Route: 048
     Dates: start: 20180409
  4. ADEMPAS [Concomitant]
     Active Substance: RIOCIGUAT
     Dosage: UNK
     Dates: end: 20180329
  5. UPTRAVI [Suspect]
     Active Substance: SELEXIPAG
     Indication: PULMONARY ARTERIAL HYPERTENSION
     Dosage: 400 MCG, BID
     Route: 048

REACTIONS (10)
  - Dysgeusia [Unknown]
  - Bronchitis [Unknown]
  - Productive cough [Unknown]
  - Depressed mood [Unknown]
  - Nasal congestion [Unknown]
  - Weight decreased [Unknown]
  - Blood pressure decreased [Unknown]
  - Sputum discoloured [Unknown]
  - Decreased appetite [Unknown]
  - Musculoskeletal discomfort [Unknown]
